FAERS Safety Report 6518212-X (Version None)
Quarter: 2009Q4

REPORT INFORMATION
  Report Type: 
  Country: None (occurrence: None)
  Receive Date: 20091218
  Receipt Date: 20091218
  Transmission Date: 20100525
  Serious: No
  Sender: FDA-Public Use
  Company Number: None

PATIENT
  Age: 83 Year
  Sex: Male
  Weight: 78.4723 kg

DRUGS (1)
  1. COLD REMEDY RAPID MELTS + VITAMIN C + ECHINACEA [Suspect]
     Dosage: TID FOR 4 DAYS
     Dates: start: 20091201, end: 20091205

REACTIONS (1)
  - AGEUSIA [None]
